FAERS Safety Report 17918489 (Version 2)
Quarter: 2020Q2

REPORT INFORMATION
  Report Type: Spontaneous
  Country: US (occurrence: US)
  Receive Date: 20200619
  Receipt Date: 20200619
  Transmission Date: 20200714
  Serious: Yes (Other)
  Sender: FDA-Public Use
  Company Number: US-CELGENEUS-USA-20200604588

PATIENT
  Age: 87 Year
  Sex: Female

DRUGS (1)
  1. REVLIMID [Suspect]
     Active Substance: LENALIDOMIDE
     Indication: PLASMA CELL MYELOMA
     Dosage: 15 MILLIGRAM
     Route: 048
     Dates: start: 20170816

REACTIONS (4)
  - Unevaluable event [Unknown]
  - Loss of consciousness [Unknown]
  - Therapeutic product effect decreased [Unknown]
  - Seizure [Unknown]

NARRATIVE: CASE EVENT DATE: 202002
